FAERS Safety Report 8763809 (Version 1)
Quarter: 2012Q4

REPORT INFORMATION
  Report Type: 
  Country: SE (occurrence: SE)
  Receive Date: 20120831
  Receipt Date: 20120831
  Transmission Date: 20130627
  Serious: Yes (Hospitalization)
  Sender: FDA-Public Use
  Company Number: SE-PFIZER INC-2012210100

PATIENT
  Sex: Female
  Weight: 47.4 kg

DRUGS (17)
  1. GESTAPURAN [Concomitant]
     Indication: BLOOD LUTEINISING HORMONE DECREASED
     Dosage: UNK
     Dates: start: 19740701
  2. GESTAPURAN [Concomitant]
     Indication: BLOOD FOLLICLE STIMULATING HORMONE DECREASED
  3. GESTAPURAN [Concomitant]
     Indication: HYPOGONADISM FEMALE
  4. FEMASEKVENS [Concomitant]
     Indication: BLOOD LUTEINISING HORMONE DECREASED
     Dosage: UNK
     Dates: start: 20030516
  5. FEMASEKVENS [Concomitant]
     Indication: BLOOD FOLLICLE STIMULATING HORMONE DECREASED
  6. FEMASEKVENS [Concomitant]
     Indication: HYPOGONADISM FEMALE
  7. PLENDIL [Concomitant]
     Indication: ESSENTIAL HYPERTENSION
     Dosage: UNK
     Dates: start: 20000207
  8. LEVOTHYROXINE [Concomitant]
     Indication: BLOOD THYROID STIMULATING HORMONE DECREASED
     Dosage: UNK
     Dates: start: 19730601
  9. LEVOTHYROXINE [Concomitant]
     Indication: PRIMARY HYPOTHYROIDISM
  10. SOMATROPIN [Suspect]
     Indication: GROWTH HORMONE DEFICIENCY
     Dosage: 0.7 mg, 7/wk
     Route: 058
     Dates: start: 20050201
  11. CORTISONE ACETATE [Concomitant]
     Indication: BLOOD CORTICOTROPHIN DECREASED
     Dosage: UNK
     Dates: start: 19731101
  12. BACLOFEN [Concomitant]
     Indication: SYRINGOMYELIA
     Dosage: UNK
     Dates: start: 19950901
  13. DICLOFENAC [Concomitant]
     Indication: NEURALGIA
     Dosage: UNK
     Dates: start: 20010602
  14. DICLOFENAC [Concomitant]
     Indication: NEURITIS
  15. ETIFOLLIN [Concomitant]
     Indication: BLOOD LUTEINISING HORMONE DECREASED
     Dosage: UNK
     Dates: start: 19740701
  16. ETIFOLLIN [Concomitant]
     Indication: BLOOD FOLLICLE STIMULATING HORMONE DECREASED
  17. ETIFOLLIN [Concomitant]
     Indication: HYPOGONADISM FEMALE

REACTIONS (1)
  - Musculoskeletal disorder [Unknown]
